FAERS Safety Report 4824897-6 (Version None)
Quarter: 2005Q4

REPORT INFORMATION
  Report Type: 
  Country: None (occurrence: None)
  Receive Date: 20051110
  Receipt Date: 20051031
  Transmission Date: 20060501
  Serious: Yes (Hospitalization)
  Sender: FDA-Public Use
  Company Number: GR-GLAXOSMITHKLINE-B0399263A

PATIENT
  Age: 32 Year
  Sex: Male
  Weight: 130 kg

DRUGS (3)
  1. AMOXICILLIN [Suspect]
     Route: 048
  2. SALBUTAMOL [Concomitant]
     Route: 055
  3. OXYGEN [Concomitant]
     Route: 065

REACTIONS (19)
  - ABDOMINAL PAIN [None]
  - ACUTE MYOCARDIAL INFARCTION [None]
  - ANAPHYLACTIC SHOCK [None]
  - ANGIONEUROTIC OEDEMA [None]
  - BLOOD CREATINE PHOSPHOKINASE INCREASED [None]
  - CHEST PAIN [None]
  - CYANOSIS [None]
  - DIZZINESS [None]
  - DYSPNOEA [None]
  - FEELING HOT [None]
  - FLUSHING [None]
  - GENERALISED ERYTHEMA [None]
  - HYPOTENSION [None]
  - PRURITUS [None]
  - SINUS TACHYCARDIA [None]
  - TROPONIN INCREASED [None]
  - URTICARIA [None]
  - VISION BLURRED [None]
  - WHEEZING [None]
